FAERS Safety Report 8816576 (Version 1)
Quarter: 2012Q4

REPORT INFORMATION
  Report Type: Spontaneous
  Country: US (occurrence: None)
  Receive Date: 20121001
  Receipt Date: 20121001
  Transmission Date: 20130627
  Serious: No
  Sender: FDA-Public Use
  Company Number: None

PATIENT
  Age: 60 Year
  Sex: Male
  Weight: 87.7 kg

DRUGS (2)
  1. CITALOPRAM [Suspect]
     Indication: DEPRESSION
     Route: 048
     Dates: start: 20120220, end: 20120731
  2. METHADONE [Suspect]
     Indication: PAIN
     Route: 048
     Dates: start: 20120715

REACTIONS (2)
  - Depression [None]
  - Electrocardiogram QT prolonged [None]
